FAERS Safety Report 4927656-9 (Version None)
Quarter: 2006Q1

REPORT INFORMATION
  Report Type: 
  Country: None (occurrence: None)
  Receive Date: 20060228
  Receipt Date: 20050706
  Transmission Date: 20060701
  Serious: Yes (Hospitalization, Disabling, Other)
  Sender: FDA-Public Use
  Company Number: US-MERCK-0507USA01051

PATIENT
  Sex: Female
  Weight: 66 kg

DRUGS (6)
  1. VIOXX [Suspect]
     Indication: ARTHRALGIA
     Route: 048
     Dates: start: 19990101, end: 20040101
  2. CELEBREX [Concomitant]
     Route: 065
  3. MOTRIN [Concomitant]
     Route: 065
  4. AMBIEN [Concomitant]
     Route: 065
  5. ASPIRIN [Concomitant]
     Route: 065
  6. PROZAC [Concomitant]
     Route: 065

REACTIONS (11)
  - ARRHYTHMIA [None]
  - BACK PAIN [None]
  - CHEST PAIN [None]
  - DEPRESSION [None]
  - EMOTIONAL DISORDER [None]
  - HYPERTENSION [None]
  - LUMBAR HERNIA [None]
  - MENTAL DISORDER [None]
  - MYOCARDIAL INFARCTION [None]
  - NECK PAIN [None]
  - PALPITATIONS [None]
